FAERS Safety Report 7030924-0 (Version None)
Quarter: 2010Q4

REPORT INFORMATION
  Report Type: 
  Country: None (occurrence: None)
  Receive Date: 20101006
  Receipt Date: 20100928
  Transmission Date: 20110411
  Serious: Yes (Life-Threatening, Hospitalization)
  Sender: FDA-Public Use
  Company Number: US-PURDUE-USA-2010-0047885

PATIENT
  Sex: Male

DRUGS (2)
  1. OXYCONTIN [Suspect]
     Indication: PAIN
     Dosage: 80 MG, BID
     Dates: start: 20100809
  2. OXYCONTIN [Suspect]
     Dosage: 40 MG, DAILY
     Dates: start: 20100809

REACTIONS (2)
  - CHEST PAIN [None]
  - HYPERTENSION [None]
